FAERS Safety Report 12558197 (Version 1)
Quarter: 2016Q3

REPORT INFORMATION
  Report Type: Spontaneous
  Country: US (occurrence: US)
  Receive Date: 20160714
  Receipt Date: 20160714
  Transmission Date: 20161109
  Serious: Yes (Life-Threatening)
  Sender: FDA-Public Use
  Company Number: US-GLAXOSMITHKLINE-US2016GSK096375

PATIENT
  Sex: Female

DRUGS (1)
  1. BREO ELLIPTA [Suspect]
     Active Substance: FLUTICASONE FUROATE\VILANTEROL TRIFENATATE
     Indication: PRODUCT USED FOR UNKNOWN INDICATION
     Dosage: UNK, SINGLE

REACTIONS (7)
  - Blood pressure increased [Unknown]
  - Nausea [Unknown]
  - Malaise [Unknown]
  - Paraesthesia [Unknown]
  - Emergency care [Unknown]
  - Adverse drug reaction [Unknown]
  - Dizziness [Unknown]
